FAERS Safety Report 7677529-6 (Version None)
Quarter: 2011Q3

REPORT INFORMATION
  Report Type: 
  Country: None (occurrence: None)
  Receive Date: 20110811
  Receipt Date: 20110802
  Transmission Date: 20111222
  Serious: Yes (Other)
  Sender: FDA-Public Use
  Company Number: US-JNJFOC-20110711071

PATIENT
  Sex: Male
  Weight: 81.65 kg

DRUGS (9)
  1. ASPIRIN [Concomitant]
     Route: 048
  2. ZOCOR [Concomitant]
     Route: 048
  3. HUMALOG [Concomitant]
     Indication: DIABETES MELLITUS
     Route: 058
  4. AMARYL [Concomitant]
     Indication: DIABETES MELLITUS
     Route: 048
  5. NORVASC [Concomitant]
     Route: 048
  6. BENICAR [Concomitant]
     Route: 048
  7. NUCYNTA [Suspect]
     Indication: PAIN IN EXTREMITY
     Dosage: ONCE DAILY AT BED TIME
     Route: 048
     Dates: start: 20110721
  8. LANTUS [Concomitant]
     Indication: DIABETES MELLITUS
     Route: 058
  9. PLAVIX [Concomitant]
     Route: 048

REACTIONS (2)
  - BLOOD GLUCOSE INCREASED [None]
  - SOMNOLENCE [None]
